FAERS Safety Report 14690776 (Version 1)
Quarter: 2018Q1

REPORT INFORMATION
  Report Type: Report from Study
  Country: CH (occurrence: CH)
  Receive Date: 20180328
  Receipt Date: 20180328
  Transmission Date: 20180509
  Serious: Yes (Other)
  Sender: FDA-Public Use
  Company Number: CH-MYLANLABS-2018M1018486

PATIENT
  Age: 26 Year
  Sex: Female
  Weight: 70 kg

DRUGS (2)
  1. REMIFENTANIL [Suspect]
     Active Substance: REMIFENTANIL
     Indication: LABOUR PAIN
     Dosage: USING THE ONYX PPS9001S PUMP AT A RATE OF 3.2 ML/H (80MICROG/H)
     Route: 041
  2. PROSTIN E2 [Concomitant]
     Active Substance: DINOPROSTONE
     Indication: LABOUR INDUCTION
     Dosage: 1MG
     Route: 065

REACTIONS (2)
  - Exposure during pregnancy [Recovered/Resolved]
  - Cardio-respiratory arrest [Recovered/Resolved]
